FAERS Safety Report 5350614-X (Version None)
Quarter: 2007Q2

REPORT INFORMATION
  Report Type: 
  Country: None (occurrence: None)
  Receive Date: 20070516
  Receipt Date: 20061201
  Transmission Date: 20071010
  Serious: Yes (Other)
  Sender: FDA-Public Use
  Company Number: 2006150478

PATIENT
  Age: 29 Year
  Sex: Female

DRUGS (2)
  1. DEPO-PROVERA [Suspect]
     Dosage: SEE IMAGE
     Route: 030
     Dates: start: 19950701, end: 19950701
  2. DEPO-PROVERA [Suspect]
     Dosage: SEE IMAGE
     Route: 030
     Dates: start: 20050501, end: 20050501

REACTIONS (1)
  - OSTEOPOROSIS [None]
